FAERS Safety Report 12802342 (Version 1)
Quarter: 2016Q4

REPORT INFORMATION
  Report Type: Spontaneous
  Country: US (occurrence: US)
  Receive Date: 20161003
  Receipt Date: 20161003
  Transmission Date: 20170207
  Serious: No
  Sender: FDA-Public Use
  Company Number: US-JAZZ-2016-US-012380

PATIENT
  Sex: Female

DRUGS (24)
  1. DHEA [Concomitant]
     Active Substance: PRASTERONE
  2. LEVOFLOXACIN. [Concomitant]
     Active Substance: LEVOFLOXACIN
  3. NATURE-THROID [Concomitant]
     Active Substance: THYROID, PORCINE
  4. XYREM [Suspect]
     Active Substance: SODIUM OXYBATE
     Indication: NARCOLEPSY
     Dosage: 4.5 G, BID
     Route: 048
     Dates: start: 201001
  5. GLUCOSAMINE/CHONDROITIN [Concomitant]
  6. LYRICA [Concomitant]
     Active Substance: PREGABALIN
  7. METHADONE HCL [Concomitant]
     Active Substance: METHADONE HYDROCHLORIDE
  8. GESLUTIN [Concomitant]
  9. WOMAN^S PASSAGE [Concomitant]
  10. ADDERALL [Concomitant]
     Active Substance: AMPHETAMINE ASPARTATE\AMPHETAMINE SULFATE\DEXTROAMPHETAMINE SACCHARATE\DEXTROAMPHETAMINE SULFATE
  11. ALEVE [Concomitant]
     Active Substance: NAPROXEN SODIUM
  12. TRAZODONE HYDROCHLORIDE. [Concomitant]
     Active Substance: TRAZODONE HYDROCHLORIDE
  13. MVI [Concomitant]
     Active Substance: VITAMINS
  14. GARLIC. [Concomitant]
     Active Substance: GARLIC
  15. SEROQUEL [Concomitant]
     Active Substance: QUETIAPINE FUMARATE
  16. ADVIL [Concomitant]
     Active Substance: IBUPROFEN
  17. FISH OIL [Concomitant]
     Active Substance: FISH OIL
  18. PROBIOTIC [Concomitant]
     Active Substance: PROBIOTICS NOS
  19. RESTORIL [Concomitant]
     Active Substance: TEMAZEPAM
  20. XYREM [Suspect]
     Active Substance: SODIUM OXYBATE
     Indication: CATAPLEXY
  21. HYALURONIC ACID SODIUM [Concomitant]
  22. VITAMIN C [Concomitant]
     Active Substance: ASCORBIC ACID
  23. CURCUMIN COMPLEX [Concomitant]
  24. JOINT SUPPLEMENT [Concomitant]

REACTIONS (2)
  - Menopause [Unknown]
  - Food poisoning [Unknown]
